FAERS Safety Report 4588512-1 (Version None)
Quarter: 2005Q1

REPORT INFORMATION
  Report Type: 
  Country: None (occurrence: None)
  Receive Date: 20050222
  Receipt Date: 20050214
  Transmission Date: 20050727
  Serious: Yes (Other)
  Sender: FDA-Public Use
  Company Number: PHFR2005GB00886

PATIENT
  Age: 11 Year
  Sex: Male

DRUGS (7)
  1. RITALIN [Suspect]
     Indication: ATTENTION DEFICIT/HYPERACTIVITY DISORDER
     Dosage: 10MG/DAY
     Dates: end: 20050212
  2. CONCERTA [Concomitant]
     Dosage: 36MG/DAY
     Route: 048
  3. GABAPENTIN [Concomitant]
     Dosage: 175MG/DAY
     Route: 048
  4. ACETAMINOPHEN [Concomitant]
  5. ERYTHROMYCIN [Concomitant]
  6. MORPHINE [Concomitant]
  7. VOLTAROL [Concomitant]

REACTIONS (3)
  - CONFUSIONAL STATE [None]
  - HALLUCINATION [None]
  - MENINGOCOCCAL SEPSIS [None]
